FAERS Safety Report 5142566-2 (Version None)
Quarter: 2006Q4

REPORT INFORMATION
  Report Type: 
  Country: None (occurrence: None)
  Receive Date: 20061031
  Receipt Date: 20061031
  Transmission Date: 20070319
  Serious: Yes (Death, Life-Threatening, Disabling)
  Sender: FDA-Public Use
  Company Number: None

PATIENT
  Age: 60 Year
  Sex: Male
  Weight: 74.4 kg

DRUGS (16)
  1. PREGABALIN [Suspect]
  2. MORPHINE S04 30MG TAB.SA [Suspect]
  3. MORPHINE SUL ORL SOLN 20MG/ML [Suspect]
  4. TEMAZEPAM [Suspect]
  5. CLONAZEPAM [Suspect]
  6. LORAZEPAM [Suspect]
  7. MORPHINE SULFATE [Concomitant]
  8. MORPHINE SUL ORL SOLN [Concomitant]
  9. TEMAZEPAM [Concomitant]
  10. PREGABALIN [Concomitant]
  11. CLONAZEPAM [Concomitant]
  12. LORAZEPAM [Concomitant]
  13. DOCUSATE NA /SENNOSIDES [Concomitant]
  14. PROMETHAZINE [Concomitant]
  15. MORPHINE SUL ORL SOLN [Concomitant]
  16. DEXTROAMPHETAMINE [Concomitant]

REACTIONS (3)
  - COORDINATION ABNORMAL [None]
  - DELIRIUM [None]
  - FATIGUE [None]
